FAERS Safety Report 9104178 (Version 1)
Quarter: 2013Q1

REPORT INFORMATION
  Report Type: Spontaneous
  Country: FR (occurrence: FR)
  Receive Date: 20130219
  Receipt Date: 20130219
  Transmission Date: 20140127
  Serious: Yes (Other)
  Sender: FDA-Public Use
  Company Number: FR-PFIZER INC-2013058393

PATIENT
  Age: 35 Year
  Sex: Male

DRUGS (16)
  1. ZYVOXID [Suspect]
     Indication: ANTIBIOTIC PROPHYLAXIS
     Dosage: 1200 MG, 1X/DAY
     Route: 042
     Dates: start: 20121211, end: 20130102
  2. CIPROFLOXACIN [Suspect]
     Indication: ANTIBIOTIC PROPHYLAXIS
     Dosage: 400 MG, 2X/DAY
     Route: 042
     Dates: start: 20121205, end: 20121228
  3. CANCIDAS [Suspect]
     Indication: ANTIFUNGAL PROPHYLAXIS
     Dosage: 50 MG, 1X/DAY
     Route: 042
     Dates: start: 20121222, end: 20121231
  4. ACICLOVIR [Suspect]
     Indication: ANTIVIRAL PROPHYLAXIS
     Dosage: 500 MG, 3X/DAY
     Route: 042
     Dates: end: 20121231
  5. DORIBAX [Suspect]
     Indication: ANTIBIOTIC PROPHYLAXIS
     Dosage: 500 MG, 3X/DAY
     Route: 042
     Dates: start: 20121222, end: 20130102
  6. CICLOSPORIN [Concomitant]
  7. PHLOROGLUCINOL/TRIMETHYLPHLOROGLUCINOL [Concomitant]
  8. DELURSAN [Concomitant]
  9. HEPARIN SODIUM [Concomitant]
  10. PHOCYTAN [Concomitant]
  11. TRACUTIL [Concomitant]
  12. INEXIUM [Concomitant]
  13. POTASSIUM CHLORIDE [Concomitant]
  14. LARGACTIL [Concomitant]
  15. CERNEVIT [Concomitant]
  16. GELOX [Concomitant]

REACTIONS (2)
  - Encephalopathy [Recovered/Resolved]
  - Hepatitis [Recovered/Resolved]
